FAERS Safety Report 14507084 (Version 1)
Quarter: 2018Q1

REPORT INFORMATION
  Report Type: Spontaneous
  Country: US (occurrence: US)
  Receive Date: 20180208
  Receipt Date: 20180208
  Transmission Date: 20180509
  Serious: Yes (Other)
  Sender: FDA-Public Use
  Company Number: US-DSJP-DSU-2017-146102

PATIENT

DRUGS (1)
  1. BENICAR [Suspect]
     Active Substance: OLMESARTAN MEDOXOMIL
     Indication: HYPERTENSION
     Dosage: 40 MG, QD
     Route: 048
     Dates: start: 20150721, end: 20171018

REACTIONS (5)
  - Large intestine benign neoplasm [Unknown]
  - Gastrooesophageal reflux disease [Not Recovered/Not Resolved]
  - Chronic gastritis [Unknown]
  - Diarrhoea [Unknown]
  - Cholelithiasis [Recovering/Resolving]

NARRATIVE: CASE EVENT DATE: 20151110
